FAERS Safety Report 16538284 (Version 1)
Quarter: 2019Q3

REPORT INFORMATION
  Report Type: Spontaneous
  Country: JP (occurrence: JP)
  Receive Date: 20190708
  Receipt Date: 20190708
  Transmission Date: 20191004
  Serious: Yes (Other)
  Sender: FDA-Public Use
  Company Number: JP-TEVA-2019-JP-003962J

PATIENT
  Age: 77 Year
  Sex: Male

DRUGS (6)
  1. GOSHAJINKIGAN [Concomitant]
     Active Substance: HERBALS
     Route: 048
  2. REBAMIPIDE [Concomitant]
     Active Substance: REBAMIPIDE
     Route: 048
  3. SUCRALFATE HYDRATE INTERNAL SOLUTION 10% ^TAIYO^ [Suspect]
     Active Substance: SUCRALFATE
     Indication: PRODUCT USED FOR UNKNOWN INDICATION
     Route: 048
  4. METHYCOBAL [Concomitant]
     Active Substance: METHYLCOBALAMIN
     Route: 048
  5. OMEPRAZOLE. [Concomitant]
     Active Substance: OMEPRAZOLE
     Route: 048
  6. MOSAPRIDE CITRATE HYDRATE [Concomitant]
     Active Substance: MOSAPRIDE CITRATE DIHYDRATE
     Route: 048

REACTIONS (4)
  - Toxic encephalopathy [Unknown]
  - Pruritus [Unknown]
  - Flushing [Unknown]
  - Feeling hot [Unknown]
